FAERS Safety Report 5467111-3 (Version None)
Quarter: 2007Q3

REPORT INFORMATION
  Report Type: 
  Country: None (occurrence: None)
  Receive Date: 20070921
  Receipt Date: 20070921
  Transmission Date: 20080115
  Serious: Yes (Other)
  Sender: FDA-Public Use
  Company Number: None

PATIENT
  Age: 61 Year
  Sex: Female
  Weight: 112.9457 kg

DRUGS (1)
  1. LYRICA [Suspect]
     Indication: FIBROMYALGIA
     Dosage: 1 OR 2 DAILY PO
     Route: 048
     Dates: start: 20070824, end: 20070916

REACTIONS (6)
  - INSOMNIA [None]
  - PALPITATIONS [None]
  - RASH PRURITIC [None]
  - SOMNOLENCE [None]
  - URTICARIA [None]
  - WHEEZING [None]
